FAERS Safety Report 8335780-6 (Version None)
Quarter: 2012Q2

REPORT INFORMATION
  Report Type: 
  Country: None (occurrence: None)
  Receive Date: 20120504
  Receipt Date: 20120427
  Transmission Date: 20120825
  Serious: No
  Sender: FDA-Public Use
  Company Number: US-BIOGENIDEC-2012BI014771

PATIENT
  Age: 50 Year
  Sex: Female

DRUGS (2)
  1. AVONEX [Suspect]
     Indication: MULTIPLE SCLEROSIS
     Route: 030
     Dates: start: 20100717, end: 20110901
  2. AVONEX [Suspect]
     Route: 030
     Dates: start: 20120201

REACTIONS (5)
  - TOOTHACHE [None]
  - GINGIVAL SWELLING [None]
  - SINUSITIS [None]
  - HYPOAESTHESIA [None]
  - FACIAL PAIN [None]
